FAERS Safety Report 6264745-3 (Version None)
Quarter: 2009Q3

REPORT INFORMATION
  Report Type: 
  Country: None (occurrence: None)
  Receive Date: 20090710
  Receipt Date: 20090630
  Transmission Date: 20100115
  Serious: Yes (Other)
  Sender: FDA-Public Use
  Company Number: CA-ABBOTT-09P-028-0583181-00

PATIENT
  Sex: Female

DRUGS (1)
  1. HUMIRA [Suspect]
     Indication: CROHN'S DISEASE
     Route: 058
     Dates: start: 20080912

REACTIONS (5)
  - CONTUSION [None]
  - INFUSION SITE EXTRAVASATION [None]
  - WOUND [None]
  - WOUND COMPLICATION [None]
  - WOUND HAEMORRHAGE [None]
